FAERS Safety Report 15433862 (Version 1)
Quarter: 2018Q3

REPORT INFORMATION
  Report Type: Spontaneous
  Country: US (occurrence: US)
  Receive Date: 20180921
  Receipt Date: 20180921
  Transmission Date: 20181010
  Serious: Yes (Other)
  Sender: FDA-Public Use
  Company Number: None

PATIENT
  Age: 46 Year
  Sex: Female

DRUGS (22)
  1. FUROSEMIDE. [Concomitant]
     Active Substance: FUROSEMIDE
  2. CIPRO [Concomitant]
     Active Substance: CIPROFLOXACIN HYDROCHLORIDE
  3. LANTUS [Concomitant]
     Active Substance: INSULIN GLARGINE
  4. NOR [Concomitant]
  5. POTASSIUM CHLORIDE. [Concomitant]
     Active Substance: POTASSIUM CHLORIDE
  6. CELLCEPL [Concomitant]
  7. EPOETIN [Concomitant]
     Active Substance: ERYTHROPOIETIN
  8. CO [Concomitant]
  9. ASPIRIN. [Concomitant]
     Active Substance: ASPIRIN
  10. OPSUMIT [Suspect]
     Active Substance: MACITENTAN
     Route: 048
     Dates: start: 201602
  11. SODIUM BICARBONATE. [Concomitant]
     Active Substance: SODIUM BICARBONATE
  12. LIPITOR [Concomitant]
     Active Substance: ATORVASTATIN CALCIUM
  13. SULFATE [Concomitant]
  14. HUMULIN R INSULIN [Concomitant]
  15. SPIRONOLACLONE [Concomitant]
  16. MAGNESIUM OXIDE. [Concomitant]
     Active Substance: MAGNESIUM OXIDE
  17. MIDODRINE [Concomitant]
     Active Substance: MIDODRINE
  18. VITAMIN B1 [Concomitant]
     Active Substance: THIAMINE HYDROCHLORIDE
  19. OMCPRAZOLE [Concomitant]
  20. LACTULOSE. [Concomitant]
     Active Substance: LACTULOSE
  21. URSO FORTE [Concomitant]
     Active Substance: URSODIOL
  22. VITAMIN D2 [Concomitant]
     Active Substance: ERGOCALCIFEROL

REACTIONS (2)
  - Renal impairment [None]
  - Hypokalaemia [None]

NARRATIVE: CASE EVENT DATE: 20180904
